FAERS Safety Report 7365571-4 (Version None)
Quarter: 2011Q1

REPORT INFORMATION
  Report Type: 
  Country: None (occurrence: None)
  Receive Date: 20110322
  Receipt Date: 20110311
  Transmission Date: 20110831
  Serious: Yes (Hospitalization, Other)
  Sender: FDA-Public Use
  Company Number: US-BAYER-2010-002793

PATIENT
  Sex: Female
  Weight: 57 kg

DRUGS (1)
  1. YAZ [Suspect]
     Indication: PRODUCT USED FOR UNKNOWN INDICATION
     Dosage: UNK
     Dates: start: 20070201, end: 20080201

REACTIONS (5)
  - NAUSEA [None]
  - ABDOMINAL PAIN [None]
  - GALLBLADDER DISORDER [None]
  - VOMITING [None]
  - CHOLECYSTITIS CHRONIC [None]
